FAERS Safety Report 4580917-8 (Version None)
Quarter: 2005Q1

REPORT INFORMATION
  Report Type: 
  Country: None (occurrence: None)
  Receive Date: 20050214
  Receipt Date: 20040624
  Transmission Date: 20050727
  Serious: Yes (Other)
  Sender: FDA-Public Use
  Company Number: US-GLAXOSMITHKLINE-A0515904A

PATIENT
  Sex: Female

DRUGS (6)
  1. LAMICTAL [Suspect]
     Dosage: 150MG TWICE PER DAY
     Route: 048
     Dates: start: 20030601
  2. KLONOPIN [Concomitant]
  3. ZOLOFT [Concomitant]
  4. FLEXERIL [Concomitant]
  5. ANTIVERT [Concomitant]
  6. FOSAMAX [Concomitant]

REACTIONS (4)
  - ALOPECIA [None]
  - COORDINATION ABNORMAL [None]
  - GRAND MAL CONVULSION [None]
  - MUSCLE SPASMS [None]
